FAERS Safety Report 16810181 (Version 1)
Quarter: 2019Q3

REPORT INFORMATION
  Report Type: Spontaneous
  Country: US (occurrence: US)
  Receive Date: 20190725
  Receipt Date: 20190725
  Transmission Date: 20191005
  Serious: No
  Sender: FDA-Public Use
  Company Number: None

PATIENT
  Age: 49 Year
  Sex: Female

DRUGS (1)
  1. STELARA [Suspect]
     Active Substance: USTEKINUMAB
     Indication: CROHN^S DISEASE
     Dates: start: 201810

REACTIONS (4)
  - Gastrointestinal pain [None]
  - Urticaria [None]
  - Flatulence [None]
  - Rash [None]

NARRATIVE: CASE EVENT DATE: 20190725
